FAERS Safety Report 8845115 (Version 1)
Quarter: 2012Q4

REPORT INFORMATION
  Report Type: 
  Country: CA (occurrence: CA)
  Receive Date: 20121017
  Receipt Date: 20121017
  Transmission Date: 20130627
  Serious: Yes (Other)
  Sender: FDA-Public Use
  Company Number: CA-BAYER-2012-084867

PATIENT
  Age: 34 Year
  Sex: Female

DRUGS (3)
  1. BETASERON [Suspect]
     Indication: MULTIPLE SCLEROSIS
     Dosage: 0.25 mg  (0.3mg), QOD
     Dates: start: 20091101
  2. LYRICA [Concomitant]
     Indication: NEURALGIA
     Dosage: 50 mg, BID
     Dates: start: 201109
  3. NEURONTIN [Concomitant]
     Indication: NEURALGIA
     Dosage: UNK
     Dates: start: 200911, end: 201109

REACTIONS (7)
  - Immunodeficiency [None]
  - Injection site erythema [Not Recovered/Not Resolved]
  - Injection site atrophy [Not Recovered/Not Resolved]
  - Injection site haematoma [Not Recovered/Not Resolved]
  - Pancytopenia [None]
  - Leukopenia [None]
  - Thrombocytopenia [None]
